FAERS Safety Report 7110257-4 (Version None)
Quarter: 2010Q4

REPORT INFORMATION
  Report Type: 
  Country: None (occurrence: None)
  Receive Date: 20101118
  Receipt Date: 20101108
  Transmission Date: 20110411
  Serious: Yes (Other)
  Sender: FDA-Public Use
  Company Number: US-JNJFOC-20101003749

PATIENT
  Sex: Female
  Weight: 86.18 kg

DRUGS (3)
  1. REMICADE [Suspect]
     Indication: RHEUMATOID ARTHRITIS
     Route: 042
  2. HYZAAR [Concomitant]
     Indication: BLOOD PRESSURE
     Route: 048
  3. NORVASC [Concomitant]
     Indication: BLOOD PRESSURE
     Route: 048

REACTIONS (2)
  - LOSS OF CONSCIOUSNESS [None]
  - MALAISE [None]
